FAERS Safety Report 19206064 (Version 1)
Quarter: 2021Q2

REPORT INFORMATION
  Report Type: Spontaneous
  Country: US (occurrence: US)
  Receive Date: 20210503
  Receipt Date: 20210503
  Transmission Date: 20210717
  Serious: Yes (Other)
  Sender: FDA-Public Use
  Company Number: None

PATIENT
  Age: 51 Year
  Sex: Female
  Weight: 83.7 kg

DRUGS (2)
  1. MAGNESIUM 200MG [Concomitant]
  2. NP THYROID [Suspect]
     Active Substance: LEVOTHYROXINE\LIOTHYRONINE
     Indication: HYPOTHYROIDISM
     Dosage: ?          QUANTITY:45 TABLET(S);?
     Route: 048
     Dates: start: 20200901, end: 20210331

REACTIONS (6)
  - Palpitations [None]
  - Arthralgia [None]
  - Insomnia [None]
  - Irritability [None]
  - Myalgia [None]
  - Emotional disorder [None]

NARRATIVE: CASE EVENT DATE: 20210210
